FAERS Safety Report 12853172 (Version 1)
Quarter: 2016Q4

REPORT INFORMATION
  Report Type: Spontaneous
  Country: US (occurrence: US)
  Receive Date: 20161017
  Receipt Date: 20161017
  Transmission Date: 20170207
  Serious: No
  Sender: FDA-Public Use
  Company Number: US-JAZZ-2016-US-014298

PATIENT
  Sex: Female

DRUGS (30)
  1. DOXYCYCLINE HYCLATE. [Concomitant]
     Active Substance: DOXYCYCLINE HYCLATE
  2. RELPAX [Concomitant]
     Active Substance: ELETRIPTAN HYDROBROMIDE
  3. NUCYNTA [Concomitant]
     Active Substance: TAPENTADOL HYDROCHLORIDE
  4. COLACE [Concomitant]
     Active Substance: DOCUSATE SODIUM
  5. TYLENOL WITH CODEINE [Concomitant]
     Active Substance: ACETAMINOPHEN\CODEINE PHOSPHATE
  6. FLUCONAZOLE. [Concomitant]
     Active Substance: FLUCONAZOLE
  7. SKYLA [Concomitant]
     Active Substance: LEVONORGESTREL
  8. CAMBIA [Concomitant]
     Active Substance: DICLOFENAC POTASSIUM
  9. TIROSINT [Concomitant]
     Active Substance: LEVOTHYROXINE SODIUM
  10. TOPAMAX [Concomitant]
     Active Substance: TOPIRAMATE
  11. MUCINEX [Concomitant]
     Active Substance: GUAIFENESIN
  12. XYREM [Suspect]
     Active Substance: SODIUM OXYBATE
     Dosage: 3.25 G, BID
     Route: 048
     Dates: start: 201607
  13. XYREM [Suspect]
     Active Substance: SODIUM OXYBATE
     Dosage: DOSE ADJUSTMENTS
     Route: 048
     Dates: start: 201510, end: 201607
  14. AFRIN [Concomitant]
     Active Substance: OXYMETAZOLINE
  15. LINZESS [Concomitant]
     Active Substance: LINACLOTIDE
  16. VENLAFAXINE HCL [Concomitant]
     Active Substance: VENLAFAXINE HYDROCHLORIDE
  17. HYDROXYZINE PAMOATE. [Concomitant]
     Active Substance: HYDROXYZINE PAMOATE
  18. ADVIL [Concomitant]
     Active Substance: IBUPROFEN
  19. VICKS DAYQUIL [Concomitant]
     Active Substance: DEXTROMETHORPHAN HYDROBROMIDE\GUAIFENESIN
  20. XYREM [Suspect]
     Active Substance: SODIUM OXYBATE
     Indication: NARCOLEPSY
     Dosage: 2.25 G, BID
     Route: 048
     Dates: start: 201510, end: 201510
  21. ZOFRAN [Concomitant]
     Active Substance: ONDANSETRON HYDROCHLORIDE
  22. LIDOCAINE HCL [Concomitant]
     Active Substance: LIDOCAINE HYDROCHLORIDE
  23. MAGNESIUM OXIDE. [Concomitant]
     Active Substance: MAGNESIUM OXIDE
  24. MEDROL [Concomitant]
     Active Substance: METHYLPREDNISOLONE
  25. TYLENOL [Concomitant]
     Active Substance: ACETAMINOPHEN
  26. BENADRYL ALLERGY [Concomitant]
     Active Substance: DIPHENHYDRAMINE HYDROCHLORIDE
  27. DIAMOX SEQUELS [Concomitant]
     Active Substance: ACETAZOLAMIDE
  28. DIGEST GOLD + PROBIOTICS [Concomitant]
  29. MULTIVITAMINS [Concomitant]
     Active Substance: VITAMINS
  30. FLONASE [Concomitant]
     Active Substance: FLUTICASONE PROPIONATE

REACTIONS (2)
  - Intentional product use issue [Unknown]
  - Anxiety [Unknown]
